FAERS Safety Report 10486743 (Version 1)
Quarter: 2014Q3

REPORT INFORMATION
  Report Type: Spontaneous
  Country: US (occurrence: None)
  Receive Date: 20140930
  Receipt Date: 20140930
  Transmission Date: 20150326
  Serious: Yes (Life-Threatening, Disabling)
  Sender: FDA-Public Use
  Company Number: None

PATIENT
  Age: 18 Year
  Sex: Male
  Weight: 74 kg

DRUGS (1)
  1. PROPECIA [Suspect]
     Active Substance: FINASTERIDE
     Indication: ALOPECIA
     Dosage: 1 ONCE DAILY TAKEN BY MOUTH
     Route: 048

REACTIONS (13)
  - Irritability [None]
  - Memory impairment [None]
  - Libido decreased [None]
  - Educational problem [None]
  - Fatigue [None]
  - Genital hypoaesthesia [None]
  - Disturbance in attention [None]
  - Cognitive disorder [None]
  - Erectile dysfunction [None]
  - Depression [None]
  - Feeling abnormal [None]
  - Quality of life decreased [None]
  - Suicide attempt [None]

NARRATIVE: CASE EVENT DATE: 20100317
